FAERS Safety Report 7785780-X (Version None)
Quarter: 2011Q3

REPORT INFORMATION
  Report Type: 
  Country: None (occurrence: None)
  Receive Date: 20110929
  Receipt Date: 20110926
  Transmission Date: 20111222
  Serious: Yes (Hospitalization)
  Sender: FDA-Public Use
  Company Number: SE-BRISTOL-MYERS SQUIBB COMPANY-14323836

PATIENT
  Age: 61 Year
  Sex: Male

DRUGS (11)
  1. PREDNISOLONE [Concomitant]
     Dosage: TABLET
  2. ACETAMINOPHEN W/ CODEINE [Concomitant]
     Dosage: 1 DF - 500MG/30MG TABLET
  3. ORUDIS [Concomitant]
     Dosage: 1DF=2.5% GEL
  4. CALCIUM CARBONATE [Concomitant]
     Dosage: 1 DF - CHEWABLE TABLET 500MG/400IE
  5. ORENCIA [Suspect]
     Indication: RHEUMATOID ARTHRITIS
     Dosage: LAST INFUSION:12MAY08.
     Dates: start: 20080125, end: 20080610
  6. METHOTREXATE TABS [Concomitant]
  7. ENBREL [Suspect]
     Indication: RHEUMATOID ARTHRITIS
     Dosage: ENBREL POWDER FOR SOLUTION FOR INJ 50MG WITH DOSAGE REGIMEN 50 MGW MG W.
     Route: 058
     Dates: start: 20031020, end: 20080101
  8. ARTHROTEC [Concomitant]
  9. FUROSEMIDE [Concomitant]
     Dosage: TABLET
  10. FOLIC ACID [Concomitant]
     Dosage: TAB
  11. ACETAMINOPHEN [Concomitant]
     Dosage: FILM-COATED TABLET

REACTIONS (2)
  - POLYNEUROPATHY [None]
  - VASCULITIS [None]
